FAERS Safety Report 7121774-5 (Version None)
Quarter: 2010Q4

REPORT INFORMATION
  Report Type: 
  Country: None (occurrence: None)
  Receive Date: 20101124
  Receipt Date: 20101117
  Transmission Date: 20110411
  Serious: Yes (Other)
  Sender: FDA-Public Use
  Company Number: US-SANOFI-AVENTIS-2010SA063680

PATIENT
  Age: 58 Year
  Sex: Female

DRUGS (2)
  1. OPTICLICK [Suspect]
     Route: 058
  2. LANTUS [Suspect]
     Dosage: DOSE:32 UNIT(S)
     Route: 058

REACTIONS (4)
  - BLOOD GLUCOSE INCREASED [None]
  - HYPERHIDROSIS [None]
  - HYPOGLYCAEMIC UNCONSCIOUSNESS [None]
  - PRODUCT QUALITY ISSUE [None]
